FAERS Safety Report 16718248 (Version 1)
Quarter: 2019Q3

REPORT INFORMATION
  Report Type: Spontaneous
  Country: US (occurrence: US)
  Receive Date: 20190820
  Receipt Date: 20190820
  Transmission Date: 20191005
  Serious: Yes (Other)
  Sender: FDA-Public Use
  Company Number: US-ABBVIE-19K-163-2892511-00

PATIENT
  Age: 61 Year
  Sex: Female
  Weight: 60.21 kg

DRUGS (1)
  1. MAVYRET [Suspect]
     Active Substance: GLECAPREVIR\PIBRENTASVIR
     Indication: HEPATITIS C
     Dosage: 100-40 MG
     Route: 048
     Dates: start: 20190312, end: 20190320

REACTIONS (7)
  - Nausea [Recovering/Resolving]
  - Fatigue [Recovering/Resolving]
  - Haematemesis [Recovering/Resolving]
  - Hypophagia [Recovering/Resolving]
  - Hypersomnia [Recovering/Resolving]
  - Haemoptysis [Recovering/Resolving]
  - Hiccups [Recovering/Resolving]

NARRATIVE: CASE EVENT DATE: 201903
